FAERS Safety Report 23673312 (Version 1)
Quarter: 2024Q1

REPORT INFORMATION
  Report Type: Spontaneous
  Country: US (occurrence: None)
  Receive Date: 20240325
  Receipt Date: 20240325
  Transmission Date: 20240409
  Serious: No
  Sender: FDA-Public Use
  Company Number: None

PATIENT
  Age: 74 Year
  Sex: Male
  Weight: 67.5 kg

DRUGS (1)
  1. NOURIANZ [Suspect]
     Active Substance: ISTRADEFYLLINE
     Indication: Parkinson^s disease
     Dosage: 40 MG DAILY ORAL
     Route: 048
     Dates: start: 20231204, end: 20240325

REACTIONS (2)
  - Aphonia [None]
  - Dysphonia [None]

NARRATIVE: CASE EVENT DATE: 20240325
